FAERS Safety Report 5047621-3 (Version None)
Quarter: 2006Q3

REPORT INFORMATION
  Report Type: 
  Country: None (occurrence: None)
  Receive Date: 20060703
  Receipt Date: 20060703
  Transmission Date: 20061208
  Serious: Yes (Hospitalization)
  Sender: FDA-Public Use
  Company Number: 2006-516

PATIENT
  Age: 80 Year
  Sex: Female

DRUGS (1)
  1. HIBICLENS [Suspect]
     Indication: LOCAL ANTIBACTERIAL THERAPY
     Dosage: TOPICAL ANTISEPTIC
     Route: 061

REACTIONS (2)
  - ACCIDENTAL EXPOSURE [None]
  - VOMITING [None]
